FAERS Safety Report 4970456-4 (Version None)
Quarter: 2006Q2

REPORT INFORMATION
  Report Type: 
  Country: None (occurrence: None)
  Receive Date: 20060406
  Receipt Date: 20060329
  Transmission Date: 20061013
  Serious: Yes (Death)
  Sender: FDA-Public Use
  Company Number: 2006-03-1909

PATIENT
  Age: 60 Year
  Sex: Female

DRUGS (2)
  1. TEMODAL [Suspect]
     Indication: GLIOBLASTOMA
     Dosage: UNKNOWN ORAL
     Route: 048
  2. RADIATION THERAPY [Concomitant]

REACTIONS (3)
  - APLASIA [None]
  - DYSPLASIA [None]
  - MYELODYSPLASTIC SYNDROME [None]
